FAERS Safety Report 4510464-0 (Version None)
Quarter: 2004Q4

REPORT INFORMATION
  Report Type: 
  Country: None (occurrence: None)
  Receive Date: 20041124
  Receipt Date: 20041112
  Transmission Date: 20050328
  Serious: Yes (Death, Hospitalization)
  Sender: FDA-Public Use
  Company Number: FR-GLAXOSMITHKLINE-B0356735A

PATIENT
  Age: 71 Year
  Sex: Female
  Weight: 61 kg

DRUGS (6)
  1. DEROXAT [Suspect]
     Dosage: 20MG PER DAY
     Route: 048
     Dates: start: 20040928, end: 20041002
  2. ACUPAN [Suspect]
     Dosage: 6UNIT PER DAY
     Route: 042
     Dates: start: 20040923, end: 20040930
  3. LASILIX [Suspect]
     Dosage: 40MG PER DAY
     Dates: start: 20040923, end: 20041001
  4. MOTILIUM [Suspect]
     Dosage: 1UNIT FOUR TIMES PER DAY
     Route: 048
     Dates: start: 20040920, end: 20040930
  5. KARDEGIC [Suspect]
     Dosage: 160MG PER DAY
     Route: 048
     Dates: end: 20041002
  6. PERFALGAN [Suspect]
     Dosage: 1UNIT FOUR TIMES PER DAY
     Route: 042
     Dates: start: 20040930, end: 20040930

REACTIONS (13)
  - ABDOMINAL PAIN [None]
  - ACUTE PULMONARY OEDEMA [None]
  - ASCITES [None]
  - CARDIO-RESPIRATORY ARREST [None]
  - CARDIOGENIC SHOCK [None]
  - LACTIC ACIDOSIS [None]
  - OXYGEN SATURATION DECREASED [None]
  - PLEURISY [None]
  - PYREXIA [None]
  - RALES [None]
  - TORSADE DE POINTES [None]
  - VENTRICULAR TACHYCARDIA [None]
  - VOMITING [None]
